FAERS Safety Report 11455880 (Version 1)
Quarter: 2015Q3

REPORT INFORMATION
  Report Type: Report from Study
  Country: DE (occurrence: DE)
  Receive Date: 20150903
  Receipt Date: 20150903
  Transmission Date: 20151125
  Serious: Yes (Death, Hospitalization)
  Sender: FDA-Public Use
  Company Number: PHHO2015DE011209

PATIENT
  Age: 71 Year
  Sex: Male
  Weight: 68 kg

DRUGS (9)
  1. BORTEZOMIB [Suspect]
     Active Substance: BORTEZOMIB
     Dosage: 1.3 MG/M2, QW, (2 WEEKS ON 1 WEEK OFF)
     Route: 058
     Dates: start: 20150622
  2. BORTEZOMIB [Suspect]
     Active Substance: BORTEZOMIB
     Dosage: 1.0 MG/M2, QW
     Route: 058
     Dates: start: 20150717
  3. LBH589 [Suspect]
     Active Substance: PANOBINOSTAT
     Dosage: 15 MG, TIW
     Route: 048
     Dates: start: 20150818
  4. LBH589 [Suspect]
     Active Substance: PANOBINOSTAT
     Indication: PLASMA CELL MYELOMA
     Dosage: 20 MG, TIW
     Route: 048
     Dates: start: 20150615
  5. DEXAMETHASONE. [Suspect]
     Active Substance: DEXAMETHASONE
     Indication: PLASMA CELL MYELOMA
     Dosage: 20 MG, QW4 (4X1 WEEKS)
     Route: 048
     Dates: start: 20150615
  6. ONDANSETRON [Concomitant]
     Active Substance: ONDANSETRON
     Indication: PRODUCT USED FOR UNKNOWN INDICATION
     Route: 065
  7. BORTEZOMIB [Suspect]
     Active Substance: BORTEZOMIB
     Dosage: 0.7 MG/M2, QW
     Route: 058
     Dates: start: 20150818
  8. DEXAMETHASONE. [Suspect]
     Active Substance: DEXAMETHASONE
     Dosage: 20 MG, BIW
     Route: 048
     Dates: start: 20150818
  9. BORTEZOMIB [Suspect]
     Active Substance: BORTEZOMIB
     Indication: PLASMA CELL MYELOMA
     Dosage: 1.3 MG/M2, QW2, (2 WEEKS ON 1 WEEK OFF)
     Route: 058
     Dates: start: 20150615

REACTIONS (6)
  - Pneumonia [Recovered/Resolved]
  - Pneumonia [Recovered/Resolved]
  - Septic shock [Fatal]
  - Thrombocytopenia [Recovered/Resolved]
  - Renal failure [Fatal]
  - Lung infection [Fatal]

NARRATIVE: CASE EVENT DATE: 20150629
